FAERS Safety Report 17315694 (Version 3)
Quarter: 2021Q1

REPORT INFORMATION
  Report Type: Spontaneous
  Country: US (occurrence: US)
  Receive Date: 20200124
  Receipt Date: 20210208
  Transmission Date: 20210419
  Serious: No
  Sender: FDA-Public Use
  Company Number: US-SA-2020SA018180

PATIENT
  Age: 36 Year
  Sex: Female

DRUGS (1)
  1. DUPIXENT [Suspect]
     Active Substance: DUPILUMAB
     Dosage: 300 MG
     Route: 058
     Dates: start: 202001

REACTIONS (3)
  - Fungal infection [Unknown]
  - Condition aggravated [Unknown]
  - Product dispensing error [Unknown]

NARRATIVE: CASE EVENT DATE: 20200108
